FAERS Safety Report 7871174-5 (Version None)
Quarter: 2011Q4

REPORT INFORMATION
  Report Type: 
  Country: None (occurrence: None)
  Receive Date: 20111029
  Receipt Date: 20110228
  Transmission Date: 20120403
  Serious: Yes (Other)
  Sender: FDA-Public Use
  Company Number: US-AMGEN-USASP2011004186

PATIENT
  Age: 67 Year
  Sex: Female

DRUGS (2)
  1. METHOTREXATE [Concomitant]
     Dosage: 1 MG, QWK
     Dates: start: 20100101
  2. ENBREL [Suspect]
     Indication: PSORIATIC ARTHROPATHY
     Dosage: 50 MG, QWK
     Dates: start: 20110104, end: 20110214

REACTIONS (5)
  - FUNGAL INFECTION [None]
  - WHEEZING [None]
  - UPPER RESPIRATORY TRACT INFECTION [None]
  - DIARRHOEA [None]
  - VULVOVAGINAL MYCOTIC INFECTION [None]
